FAERS Safety Report 19774103 (Version 2)
Quarter: 2021Q3

REPORT INFORMATION
  Report Type: Spontaneous
  Country: US (occurrence: US)
  Receive Date: 20210901
  Receipt Date: 20210919
  Transmission Date: 20211014
  Serious: No
  Sender: FDA-Public Use
  Company Number: US-SA-2021SA287780

PATIENT
  Sex: Female
  Weight: 80 kg

DRUGS (1)
  1. DUPIXENT [Suspect]
     Active Substance: DUPILUMAB
     Indication: DERMATITIS ATOPIC
     Dosage: 300 MG, QOW (300 MG/2ML)
     Route: 058

REACTIONS (2)
  - COVID-19 [Unknown]
  - Pruritus [Unknown]
